FAERS Safety Report 9678379 (Version 2)
Quarter: 2014Q2

REPORT INFORMATION
  Report Type: Report from Study
  Country: JP (occurrence: JP)
  Receive Date: 20131108
  Receipt Date: 20140409
  Transmission Date: 20141212
  Serious: Yes (Death)
  Sender: FDA-Public Use
  Company Number: JP-SA-2013SA111027

PATIENT
  Sex: 0

DRUGS (5)
  1. FLUDARABINE PHOSPHATE [Suspect]
     Indication: SURGICAL PRECONDITIONING
     Route: 065
  2. METHOTREXATE [Suspect]
     Indication: PROPHYLAXIS AGAINST GRAFT VERSUS HOST DISEASE
     Route: 065
  3. L-PAM [Suspect]
     Indication: SURGICAL PRECONDITIONING
     Route: 065
  4. BUSULFAN [Suspect]
     Indication: SURGICAL PRECONDITIONING
     Route: 065
  5. TACROLIMUS [Suspect]
     Indication: PROPHYLAXIS AGAINST GRAFT VERSUS HOST DISEASE
     Route: 065

REACTIONS (2)
  - Idiopathic pneumonia syndrome [Fatal]
  - Off label use [Unknown]
